FAERS Safety Report 7072474-1 (Version None)
Quarter: 2010Q4

REPORT INFORMATION
  Report Type: 
  Country: None (occurrence: None)
  Receive Date: 20101029
  Receipt Date: 20101021
  Transmission Date: 20110411
  Serious: Yes (Other)
  Sender: FDA-Public Use
  Company Number: US-SANOFI-AVENTIS-2010SA064779

PATIENT
  Age: 73 Year
  Sex: Male
  Weight: 110.7 kg

DRUGS (10)
  1. LANTUS [Suspect]
     Dosage: DOSE:50 UNIT(S)
     Route: 058
  2. METFORMIN HYDROCHLORIDE [Suspect]
     Route: 048
     Dates: end: 20100831
  3. JANUVIA [Concomitant]
     Dates: start: 20100801
  4. DIGOXIN [Concomitant]
  5. LOVASTATIN [Concomitant]
  6. ATENOLOL [Concomitant]
     Indication: TACHYCARDIA
  7. HUMALOG [Concomitant]
     Dosage: DOSE:12 UNIT(S)
     Dates: start: 20100101
  8. ACTOS [Concomitant]
     Dates: start: 20100101
  9. VITAMIN D [Concomitant]
     Indication: VITAMIN D DEFICIENCY
  10. ASCORBIC ACID [Concomitant]
     Indication: VITAMIN C DEFICIENCY

REACTIONS (7)
  - BLOOD GLUCOSE INCREASED [None]
  - CREATININE RENAL CLEARANCE INCREASED [None]
  - DRUG INEFFECTIVE [None]
  - DYSURIA [None]
  - HYPERTENSION [None]
  - OEDEMA [None]
  - PROSTATOMEGALY [None]
